FAERS Safety Report 13460614 (Version 1)
Quarter: 2017Q2

REPORT INFORMATION
  Report Type: Spontaneous
  Country: US (occurrence: US)
  Receive Date: 20170420
  Receipt Date: 20170420
  Transmission Date: 20170830
  Serious: Yes (Other)
  Sender: FDA-Public Use
  Company Number: PHHY2017US055616

PATIENT
  Age: 19 Year
  Sex: Male

DRUGS (14)
  1. FENTANYL. [Concomitant]
     Active Substance: FENTANYL
     Indication: STATUS EPILEPTICUS
     Route: 065
  2. TACROLIMUS. [Suspect]
     Active Substance: TACROLIMUS
     Indication: IMMUNOSUPPRESSION
     Dosage: 5 MG, UNK
     Route: 065
  3. TACROLIMUS. [Interacting]
     Active Substance: TACROLIMUS
     Dosage: 10 MG, UNK
     Route: 065
  4. TACROLIMUS. [Interacting]
     Active Substance: TACROLIMUS
     Dosage: 5 MG, BID
     Route: 065
  5. TOPIRAMATE. [Interacting]
     Active Substance: TOPIRAMATE
     Indication: STATUS EPILEPTICUS
     Route: 065
  6. TACROLIMUS. [Interacting]
     Active Substance: TACROLIMUS
     Dosage: 7 MG, UNK
     Route: 065
  7. METHYLPREDNISOLONE. [Concomitant]
     Active Substance: METHYLPREDNISOLONE
     Indication: STATUS EPILEPTICUS
     Route: 042
  8. PHENYTOIN. [Interacting]
     Active Substance: PHENYTOIN
     Indication: STATUS EPILEPTICUS
     Route: 065
  9. VALPROIC ACID. [Concomitant]
     Active Substance: VALPROIC ACID
     Indication: STATUS EPILEPTICUS
     Route: 065
  10. TACROLIMUS. [Interacting]
     Active Substance: TACROLIMUS
     Dosage: 6 MG, UNK
     Route: 065
  11. PENTOBARBITAL. [Concomitant]
     Active Substance: PENTOBARBITAL
     Indication: STATUS EPILEPTICUS
     Route: 065
  12. IMMUNOGLOBULIN HUMAN NORMAL [Concomitant]
     Active Substance: HUMAN IMMUNOGLOBULIN G
     Indication: STATUS EPILEPTICUS
     Route: 042
  13. TACROLIMUS. [Interacting]
     Active Substance: TACROLIMUS
     Dosage: 9 MG, UNK
     Route: 065
  14. PROPOFOL. [Concomitant]
     Active Substance: PROPOFOL
     Indication: STATUS EPILEPTICUS
     Route: 065

REACTIONS (2)
  - Drug interaction [Unknown]
  - Drug level decreased [Unknown]
